FAERS Safety Report 5150230-9 (Version None)
Quarter: 2006Q4

REPORT INFORMATION
  Report Type: 
  Country: None (occurrence: None)
  Receive Date: 20061109
  Receipt Date: 20061109
  Transmission Date: 20070319
  Serious: Yes (Congenital Anomaly)
  Sender: FDA-Public Use
  Company Number: None

PATIENT
  Age: 42 Year
  Sex: Female
  Weight: 77.5651 kg

DRUGS (1)
  1. LEVITRA [Suspect]

REACTIONS (7)
  - AMNIOCENTESIS ABNORMAL [None]
  - ANENCEPHALY [None]
  - CONGENITAL ANOMALY [None]
  - GROWTH RETARDATION [None]
  - PREGNANCY [None]
  - TRANSMISSION OF DRUG VIA SEMEN [None]
  - TRISOMY 18 [None]
